FAERS Safety Report 17566489 (Version 1)
Quarter: 2020Q1

REPORT INFORMATION
  Report Type: Spontaneous
  Country: US (occurrence: US)
  Receive Date: 20200320
  Receipt Date: 20200320
  Transmission Date: 20200409
  Serious: Yes (Life-Threatening, Other)
  Sender: FDA-Public Use
  Company Number: US-MYLANLABS-2020M1029230

PATIENT
  Sex: Male
  Weight: 113 kg

DRUGS (1)
  1. EPINEPHRINE INJECTION USP AUTO-INJECTOR [Suspect]
     Active Substance: EPINEPHRINE
     Indication: HYPERSENSITIVITY
     Dosage: AS NEEDED
     Route: 030

REACTIONS (2)
  - Device failure [Not Recovered/Not Resolved]
  - Product quality issue [Not Recovered/Not Resolved]
